FAERS Safety Report 20369047 (Version 1)
Quarter: 2022Q1

REPORT INFORMATION
  Report Type: Spontaneous
  Country: US (occurrence: US)
  Receive Date: 20220124
  Receipt Date: 20220124
  Transmission Date: 20220424
  Serious: Yes (Hospitalization)
  Sender: FDA-Public Use
  Company Number: US-SAMSUNG BIOEPIS-SB-2022-01204

PATIENT
  Age: 15 Year
  Sex: Female

DRUGS (1)
  1. INFLIXIMAB [Suspect]
     Active Substance: INFLIXIMAB
     Indication: Crohn^s disease
     Dosage: UNKNOWN.
     Route: 042

REACTIONS (4)
  - Ileal stenosis [Unknown]
  - Rosai-Dorfman syndrome [Unknown]
  - Henoch-Schonlein purpura [Recovered/Resolved]
  - Off label use [Unknown]
